FAERS Safety Report 4308550-3 (Version None)
Quarter: 2004Q1

REPORT INFORMATION
  Report Type: 
  Country: None (occurrence: None)
  Receive Date: 20040227
  Receipt Date: 20040217
  Transmission Date: 20041129
  Serious: Yes (Disabling)
  Sender: FDA-Public Use
  Company Number: US-JNJFOC-20040203709

PATIENT
  Age: 56 Year
  Sex: Male
  Weight: 98.8842 kg

DRUGS (1)
  1. REMICADE [Suspect]
     Indication: RHEUMATOID ARTHRITIS
     Dosage: INTRAVENOUS
     Route: 042
     Dates: start: 20040128, end: 20040128

REACTIONS (3)
  - EYE PAIN [None]
  - FEELING ABNORMAL [None]
  - UPPER RESPIRATORY TRACT INFECTION [None]
